FAERS Safety Report 25078229 (Version 1)
Quarter: 2025Q1

REPORT INFORMATION
  Report Type: Spontaneous
  Country: US (occurrence: None)
  Receive Date: 20250313
  Receipt Date: 20250313
  Transmission Date: 20250409
  Serious: Yes (Hospitalization)
  Sender: FDA-CTU
  Company Number: None

PATIENT
  Sex: Male

DRUGS (4)
  1. CREON [Suspect]
     Active Substance: PANCRELIPASE AMYLASE\PANCRELIPASE LIPASE\PANCRELIPASE PROTEASE
     Route: 048
     Dates: start: 202409
  2. PULMOZYME [Suspect]
     Active Substance: DORNASE ALFA
     Dosage: 1MG BID INHALATION
     Route: 055
     Dates: start: 202411
  3. CAYSTON [Suspect]
     Active Substance: AZTREONAM
  4. TOBRAMYCIN [Suspect]
     Active Substance: TOBRAMYCIN

REACTIONS (1)
  - Lung transplant [None]
